FAERS Safety Report 8947647 (Version 1)
Quarter: 2012Q4

REPORT INFORMATION
  Report Type: 
  Country: US (occurrence: US)
  Receive Date: 20121204
  Receipt Date: 20121204
  Transmission Date: 20130627
  Serious: Yes (Hospitalization, Congenital Anomaly, Other)
  Sender: FDA-Public Use
  Company Number: US-PFIZER INC-2012300612

PATIENT
  Sex: Male
  Weight: 1.48 kg

DRUGS (13)
  1. ZOLOFT [Suspect]
     Indication: DEPRESSION
     Dosage: 100 mg, 1x/day
     Route: 064
     Dates: start: 20080623
  2. ZOLOFT [Suspect]
     Indication: ANXIETY
     Dosage: 50 mg, 1x/day
     Route: 064
     Dates: start: 20100712
  3. SERTRALINE [Concomitant]
     Dosage: 100 mg, 1x/day
     Route: 064
     Dates: start: 20100102
  4. PROMETHEGAN [Concomitant]
     Dosage: 25 mg, 3x/day
     Route: 064
     Dates: start: 20100219
  5. PRENATAL VITAMINS [Concomitant]
     Dosage: UNK, 1x/day
     Route: 064
     Dates: start: 20100225
  6. ONDASETRON [Concomitant]
     Dosage: 8 mg, 3x/day
     Route: 064
     Dates: start: 20100228
  7. FOLIC ACID [Concomitant]
     Dosage: 1 mg, (four tablets), UNK
     Route: 064
     Dates: start: 20100312
  8. TOPROL XL [Concomitant]
     Dosage: 35 mg, UNK
     Route: 064
     Dates: start: 20100330
  9. VICODIN [Concomitant]
     Dosage: 7.5 mg, UNK
     Route: 064
     Dates: start: 20100330
  10. AMOXICILLIN TRIHYDRATE/CLAVULANATE POTASSIUM [Concomitant]
     Dosage: 500 mg, 3x/day
     Route: 064
     Dates: start: 20100330
  11. ALPRAZOLAM [Concomitant]
     Dosage: 1 mg, 3x/day
     Route: 064
     Dates: start: 20100330
  12. ADDERALL XR [Concomitant]
     Dosage: 15 mg, 1x/day
     Route: 064
     Dates: start: 20100330
  13. HYDROCODONE W/ACETAMINOPHEN [Concomitant]
     Dosage: (5mg/500mg) one tablet, 4x/day
     Route: 064
     Dates: start: 20100426

REACTIONS (13)
  - Maternal exposure timing unspecified [Unknown]
  - Univentricular heart [Unknown]
  - Heart disease congenital [Unknown]
  - Congenital great vessel anomaly [Unknown]
  - Pulmonary valve stenosis congenital [Unknown]
  - Myocardial ischaemia [Unknown]
  - Atrial septal defect [Unknown]
  - Atrial septal defect [Unknown]
  - Patent ductus arteriosus [Unknown]
  - Neonatal respiratory distress syndrome [Unknown]
  - Pulmonary oedema [Unknown]
  - Premature baby [Unknown]
  - Thrombophlebitis [Unknown]
